FAERS Safety Report 17240419 (Version 1)
Quarter: 2020Q1

REPORT INFORMATION
  Report Type: Report from Study
  Country: NL (occurrence: NL)
  Receive Date: 20200107
  Receipt Date: 20200107
  Transmission Date: 20200409
  Serious: Yes (Hospitalization)
  Sender: FDA-Public Use
  Company Number: NL-ROCHE-2507355

PATIENT
  Age: 46 Year
  Sex: Female

DRUGS (4)
  1. CARBOPLATIN. [Suspect]
     Active Substance: CARBOPLATIN
     Indication: HER-2 POSITIVE BREAST CANCER
     Dosage: 6MG*ML/MIN ADMINISTERED INTRAVENOUSLY ON DAY 1?MOST RECENT DOSE RECEIVED ON: 22/OCT/2019
     Route: 042
     Dates: start: 20190709
  2. TRASTUZUMAB. [Suspect]
     Active Substance: TRASTUZUMAB
     Indication: HER-2 POSITIVE BREAST CANCER
     Dosage: 6MG/KG ADMINISTERED INTRAVENOUSLY ON DAY 1 (LOADING DOSE 8MG/KG)??MOST RECENT DOSE RECEIVED ON: 22/O
     Route: 041
     Dates: start: 20190709
  3. PACLITAXEL. [Suspect]
     Active Substance: PACLITAXEL
     Indication: HER-2 POSITIVE BREAST CANCER
     Dosage: 80 MG/M2 ADMINISTERED INTRAVENOUSLY ON DAY 1 AND DAY 8?MOST RECENT DOSE RECEIVED ON: 22/OCT/2019
     Route: 042
     Dates: start: 20190709
  4. PERTUZUMAB. [Suspect]
     Active Substance: PERTUZUMAB
     Indication: HER-2 POSITIVE BREAST CANCER
     Dosage: 420MG ADMINISTERED INTRAVENOUSLY ON DAY 1?MOST RECENT DOSE RECEIVED ON: 22/OCT/2019
     Route: 042
     Dates: start: 20190709

REACTIONS (3)
  - Chest pain [Recovered/Resolved]
  - Pain [Recovered/Resolved]
  - Palpitations [Recovered/Resolved]

NARRATIVE: CASE EVENT DATE: 20191101
